FAERS Safety Report 7981639-3 (Version None)
Quarter: 2011Q4

REPORT INFORMATION
  Report Type: 
  Country: None (occurrence: None)
  Receive Date: 20111215
  Receipt Date: 20111205
  Transmission Date: 20120403
  Serious: Yes (Death)
  Sender: FDA-Public Use
  Company Number: JP-BRISTOL-MYERS SQUIBB COMPANY-16290355

PATIENT
  Age: 73 Year
  Sex: Male

DRUGS (2)
  1. CISPLATIN [Suspect]
     Indication: OESOPHAGEAL CARCINOMA
     Dosage: ON DAYS 1 + 8 REPEATED TWICE EVERY 5 WEEKS
  2. FLUOROURACIL [Suspect]
     Indication: OESOPHAGEAL CARCINOMA
     Dosage: ON DAYS 1-5 AND 8-12

REACTIONS (1)
  - AORTO-OESOPHAGEAL FISTULA [None]
